FAERS Safety Report 12087378 (Version 1)
Quarter: 2016Q1

REPORT INFORMATION
  Report Type: Spontaneous
  Country: PT (occurrence: PT)
  Receive Date: 20160217
  Receipt Date: 20160217
  Transmission Date: 20160526
  Serious: Yes (Death, Hospitalization, Other)
  Sender: FDA-Public Use
  Company Number: PT-GILEAD-2016-0197168

PATIENT
  Age: 42 Year
  Sex: Male

DRUGS (1)
  1. HARVONI [Suspect]
     Active Substance: LEDIPASVIR\SOFOSBUVIR
     Indication: PRODUCT USED FOR UNKNOWN INDICATION
     Dosage: UNK
     Route: 065
     Dates: start: 20150701

REACTIONS (5)
  - Altered state of consciousness [Unknown]
  - Hemiparesis [Unknown]
  - Hepatic failure [Fatal]
  - Multiple organ dysfunction syndrome [Fatal]
  - Cortical laminar necrosis [Unknown]
